FAERS Safety Report 21033625 (Version 1)
Quarter: 2022Q3

REPORT INFORMATION
  Report Type: Spontaneous
  Country: NL (occurrence: NL)
  Receive Date: 20220701
  Receipt Date: 20220701
  Transmission Date: 20221027
  Serious: Yes (Hospitalization)
  Sender: FDA-Public Use
  Company Number: None

PATIENT
  Age: 69 Year
  Sex: Male

DRUGS (4)
  1. QUETIAPINE [Suspect]
     Active Substance: QUETIAPINE
     Indication: Hallucination
     Dosage: 25 MILLIGRAM DAILY; 1DD 1 PIECE, FORM STRENGTH:25 MG, UNIT DOSE: 25 MG, FREQUENCY TIME- 1 DAYS, DURA
     Dates: start: 20220420, end: 20220524
  2. QUETIAPINE [Suspect]
     Active Substance: QUETIAPINE
     Indication: Delusion
  3. CARBIDOPA\LEVODOPA [Concomitant]
     Active Substance: CARBIDOPA\LEVODOPA
     Indication: Product used for unknown indication
     Dosage: 125 MG, 2 - 1.5 - 1.5 - 1.5 - 1.5 -1.5 - 1.5 - 0.5 TAB (2.5 HOUR INTERVAL), FORM STRENGTH 100/25MG,
  4. ENTACAPONE [Concomitant]
     Active Substance: ENTACAPONE
     Indication: Product used for unknown indication
     Dosage: FORM STRENGTH 200MG / BRAND NAME NOT SPECIFIED, THERAPY START DATE AND END DATE: ASKU

REACTIONS (2)
  - Renal failure [Unknown]
  - Urinary retention [Recovering/Resolving]

NARRATIVE: CASE EVENT DATE: 20220524
